FAERS Safety Report 5860742-8 (Version None)
Quarter: 2008Q3

REPORT INFORMATION
  Report Type: 
  Country: None (occurrence: None)
  Receive Date: 20080827
  Receipt Date: 20071030
  Transmission Date: 20090109
  Serious: No
  Sender: FDA-Public Use
  Company Number: US-ABBOTT-07P-163-0422571-00

PATIENT
  Sex: Female
  Weight: 55.388 kg

DRUGS (2)
  1. COATED PDS [Suspect]
     Indication: HIGH DENSITY LIPOPROTEIN DECREASED
     Route: 048
     Dates: start: 20071002
  2. ACETYLSALICYLIC ACID SRT [Concomitant]
     Indication: ADVERSE DRUG REACTION
     Route: 048
     Dates: start: 20071002

REACTIONS (2)
  - DIARRHOEA [None]
  - FLUSHING [None]
